FAERS Safety Report 7531558-1 (Version None)
Quarter: 2011Q2

REPORT INFORMATION
  Report Type: 
  Country: None (occurrence: None)
  Receive Date: 20110608
  Receipt Date: 20110531
  Transmission Date: 20111010
  Serious: Yes (Other)
  Sender: FDA-Public Use
  Company Number: US-SANOFI-AVENTIS-2011SA034871

PATIENT
  Sex: Male

DRUGS (8)
  1. NOVOLOG [Concomitant]
  2. PANTOPRAZOLE [Concomitant]
  3. SIMVASTATIN [Concomitant]
  4. REGLAN [Concomitant]
  5. ATENOLOL [Concomitant]
  6. ASPIRIN [Concomitant]
  7. LANTUS [Suspect]
     Dosage: 50-55 UNITS
     Route: 058
     Dates: start: 20050101
  8. ENALAPRIL MALEATE [Concomitant]

REACTIONS (4)
  - TOE AMPUTATION [None]
  - INJECTION SITE INFECTION [None]
  - GANGRENE [None]
  - BLOOD GLUCOSE INCREASED [None]
